FAERS Safety Report 6347546-7 (Version None)
Quarter: 2009Q3

REPORT INFORMATION
  Report Type: 
  Country: None (occurrence: None)
  Receive Date: 20090910
  Receipt Date: 20090903
  Transmission Date: 20100115
  Serious: Yes (Hospitalization)
  Sender: FDA-Public Use
  Company Number: SE-TEVA-208281ISR

PATIENT
  Sex: Male

DRUGS (4)
  1. OXAZEPAM [Suspect]
     Route: 064
     Dates: start: 20090628, end: 20090728
  2. DIAZEPAM [Suspect]
     Route: 064
     Dates: start: 20090628, end: 20090728
  3. PROMETHAZINE HCL [Concomitant]
     Route: 064
  4. PROPRANOLOL [Concomitant]
     Route: 064

REACTIONS (1)
  - RESPIRATORY DEPRESSION [None]
